FAERS Safety Report 15624911 (Version 1)
Quarter: 2018Q4

REPORT INFORMATION
  Report Type: Spontaneous
  Country: BR (occurrence: BR)
  Receive Date: 20181116
  Receipt Date: 20181116
  Transmission Date: 20190205
  Serious: Yes (Other)
  Sender: FDA-Public Use
  Company Number: PHHY2018BR154943

PATIENT
  Sex: Female
  Weight: 63 kg

DRUGS (2)
  1. VITALUX PLUS OMEGA 03 (ALC) [Suspect]
     Active Substance: MINERALS\OMEGA-3 FATTY ACIDS\VITAMINS
     Indication: MACULAR DEGENERATION
     Dosage: 1 DF, QD
     Route: 048
  2. PREGABALIN. [Suspect]
     Active Substance: PREGABALIN
     Indication: PRODUCT USED FOR UNKNOWN INDICATION
     Route: 065

REACTIONS (8)
  - Dementia Alzheimer^s type [Unknown]
  - Malaise [Unknown]
  - Multi-organ disorder [Unknown]
  - Gait inability [Unknown]
  - Spinal disorder [Unknown]
  - Confusional state [Unknown]
  - Nervousness [Unknown]
  - Deafness [Unknown]
